FAERS Safety Report 10185684 (Version 1)
Quarter: 2014Q2

REPORT INFORMATION
  Report Type: Spontaneous
  Country: US (occurrence: US)
  Receive Date: 20140521
  Receipt Date: 20140521
  Transmission Date: 20141212
  Serious: Yes (Hospitalization)
  Sender: FDA-Public Use
  Company Number: US-ELI_LILLY_AND_COMPANY-US201405003380

PATIENT
  Sex: Male

DRUGS (5)
  1. HUMALOG LISPRO [Suspect]
     Indication: TYPE 2 DIABETES MELLITUS
     Dosage: UNK
     Route: 065
     Dates: start: 2004
  2. LEVEMIR [Concomitant]
     Dosage: 60 U, EACH EVENING
  3. LOVASTATIN [Concomitant]
  4. TRICOR [Concomitant]
  5. BABY ASPIRIN [Concomitant]

REACTIONS (3)
  - Nephrolithiasis [Unknown]
  - Ulcer haemorrhage [Unknown]
  - Blood glucose increased [Unknown]
